FAERS Safety Report 18331410 (Version 1)
Quarter: 2020Q3

REPORT INFORMATION
  Report Type: Spontaneous
  Country: DE (occurrence: DE)
  Receive Date: 20200930
  Receipt Date: 20200930
  Transmission Date: 20201103
  Serious: Yes (Hospitalization)
  Sender: FDA-Public Use
  Company Number: DE-MYLANLABS-2020M1082431

PATIENT
  Age: 91 Year
  Sex: Male
  Weight: 80 kg

DRUGS (9)
  1. FOLSAEURE [Concomitant]
     Active Substance: FOLIC ACID
     Dosage: UNK UNK, QD(NK MG, 1?0?0?0, TABLETTEN)
     Route: 048
  2. VERAPAMIL [Concomitant]
     Active Substance: VERAPAMIL HYDROCHLORIDE
     Dosage: 80 MILLIGRAM, BID(80 MG, 0?1?1?0, TABLETTEN)
     Route: 048
  3. EDOXABAN [Suspect]
     Active Substance: EDOXABAN TOSYLATE
     Indication: PRODUCT USED FOR UNKNOWN INDICATION
     Dosage: 30 MILLIGRAM, QD(30 MG, 1?0?0?0, TABLETTEN)
     Route: 048
  4. CANDESARTAN. [Concomitant]
     Active Substance: CANDESARTAN
     Dosage: 4 MILLIGRAM, QD(4 MG, 1?0?0?0, TABLETTEN)
     Route: 048
  5. PANTOPRAZOL                        /01263201/ [Concomitant]
     Active Substance: PANTOPRAZOLE
     Dosage: 40 MILLIGRAM, QD(40 MG, 1?0?0?0, TABLETTEN)
     Route: 048
  6. COLECALCIFEROL [Concomitant]
     Active Substance: CHOLECALCIFEROL
     Dosage: 1000 INTERNATIONAL UNIT, QD(1000 IE, 1?0?0?0, TABLETTEN)
     Route: 048
  7. QUINAGOLIDA [Concomitant]
     Dosage: 150 MICROGRAM(150 ?G, 0?0?2?0, TABLETTEN)
     Route: 048
  8. CITALOPRAM [Suspect]
     Active Substance: CITALOPRAM HYDROBROMIDE
     Indication: PRODUCT USED FOR UNKNOWN INDICATION
     Dosage: 10 MILLIGRAM, QD(10 MG, 1?0?0?0, TABLETTEN)
     Route: 048
  9. FINASTERID [Concomitant]
     Active Substance: FINASTERIDE
     Dosage: 5 MILLIGRAM, QD(5 MG, 1?0?0?0, TABLETTEN)
     Route: 048

REACTIONS (7)
  - Anaemia [Unknown]
  - Internal haemorrhage [Unknown]
  - Haematemesis [Unknown]
  - Fatigue [Unknown]
  - Abdominal pain upper [Unknown]
  - General physical health deterioration [Unknown]
  - Pallor [Unknown]
